FAERS Safety Report 17845916 (Version 1)
Quarter: 2020Q2

REPORT INFORMATION
  Report Type: Spontaneous
  Country: SE (occurrence: SE)
  Receive Date: 20200601
  Receipt Date: 20200601
  Transmission Date: 20200714
  Serious: Yes (Other)
  Sender: FDA-Public Use
  Company Number: SE-TEVA-2020-SE-1241329

PATIENT
  Age: 60 Year
  Sex: Female
  Weight: 62 kg

DRUGS (2)
  1. OMEPRAZOL ACTAVIS [Suspect]
     Active Substance: OMEPRAZOLE
     Indication: ABDOMINAL PAIN UPPER
  2. OMEPRAZOL ACTAVIS [Suspect]
     Active Substance: OMEPRAZOLE
     Indication: HERNIA
     Dosage: 20 MG
     Dates: start: 20200312, end: 20200505

REACTIONS (2)
  - Mouth ulceration [Recovering/Resolving]
  - Depression [Recovering/Resolving]

NARRATIVE: CASE EVENT DATE: 202003
